FAERS Safety Report 11546150 (Version 1)
Quarter: 2015Q3

REPORT INFORMATION
  Report Type: Spontaneous
  Country: US (occurrence: US)
  Receive Date: 20150903
  Receipt Date: 20150903
  Transmission Date: 20151125
  Serious: No
  Sender: FDA-Public Use
  Company Number: US-ELI_LILLY_AND_COMPANY-US201208000750

PATIENT
  Sex: Male

DRUGS (2)
  1. LISPRO 25LIS75NPL KWIKPEN / MIRIOPEN [Suspect]
     Active Substance: INSULIN LISPRO
     Dosage: 100 U, EACH EVENING
  2. LISPRO 25LIS75NPL KWIKPEN / MIRIOPEN [Suspect]
     Active Substance: INSULIN LISPRO
     Indication: TYPE 2 DIABETES MELLITUS
     Dosage: 100 U, EACH MORNING

REACTIONS (2)
  - Diabetes mellitus [Not Recovered/Not Resolved]
  - Obesity [Not Recovered/Not Resolved]
